FAERS Safety Report 12988524 (Version 1)
Quarter: 2016Q4

REPORT INFORMATION
  Report Type: Spontaneous
  Country: US (occurrence: US)
  Receive Date: 20161130
  Receipt Date: 20161130
  Transmission Date: 20170207
  Serious: No
  Sender: FDA-Public Use
  Company Number: US-ACTELION-A-US2016-143931

PATIENT
  Age: 84 Year
  Sex: Female

DRUGS (3)
  1. TRAMADOL. [Suspect]
     Active Substance: TRAMADOL
     Indication: PAIN
     Route: 065
  2. AMLODIPINE [Concomitant]
     Active Substance: AMLODIPINE BESYLATE
  3. OPSUMIT [Suspect]
     Active Substance: MACITENTAN
     Indication: PULMONARY ARTERIAL HYPERTENSION
     Dosage: 10 MG, QD
     Route: 048
     Dates: start: 20160930

REACTIONS (6)
  - Oedema peripheral [Unknown]
  - Neck pain [Unknown]
  - Nausea [Unknown]
  - Back pain [Unknown]
  - Mobility decreased [Unknown]
  - Constipation [Unknown]

NARRATIVE: CASE EVENT DATE: 20161011
